FAERS Safety Report 9274320 (Version 2)
Quarter: 2013Q3

REPORT INFORMATION
  Report Type: Spontaneous
  Country: GB (occurrence: GB)
  Receive Date: 20130506
  Receipt Date: 20130702
  Transmission Date: 20140515
  Serious: Yes (Other)
  Sender: FDA-Public Use
  Company Number: GB-ELI_LILLY_AND_COMPANY-GB201304008307

PATIENT
  Age: 75 Year
  Sex: Female

DRUGS (2)
  1. HUMALOG LISPRO [Suspect]
     Indication: DIABETES MELLITUS
     Dosage: 22 U, TID
  2. LEVEMIR [Concomitant]

REACTIONS (4)
  - Cerebrovascular accident [Unknown]
  - Hip fracture [Unknown]
  - Hand fracture [Unknown]
  - Musculoskeletal disorder [Unknown]
